FAERS Safety Report 20425878 (Version 1)
Quarter: 2022Q1

REPORT INFORMATION
  Report Type: Report from Study
  Country: US (occurrence: US)
  Receive Date: 20220204
  Receipt Date: 20220204
  Transmission Date: 20220423
  Serious: No
  Sender: FDA-Public Use
  Company Number: US-EXELIXIS-CABO-21040670

PATIENT
  Sex: Female

DRUGS (2)
  1. CABOMETYX [Suspect]
     Active Substance: CABOZANTINIB S-MALATE
     Indication: Uterine cancer
     Dosage: 20 MG, QD
     Dates: start: 20210430
  2. CABOMETYX [Suspect]
     Active Substance: CABOZANTINIB S-MALATE
     Indication: Endometrial cancer

REACTIONS (12)
  - Bone pain [Not Recovered/Not Resolved]
  - Back pain [Recovering/Resolving]
  - Gingival bleeding [Unknown]
  - Fatigue [Not Recovered/Not Resolved]
  - Dizziness [Not Recovered/Not Resolved]
  - Constipation [Unknown]
  - Pain in extremity [Recovering/Resolving]
  - Nausea [Unknown]
  - Insomnia [Unknown]
  - Haematochezia [Unknown]
  - Malignant neoplasm progression [Unknown]
  - Off label use [Unknown]
